FAERS Safety Report 9264947 (Version 2)
Quarter: 2013Q2

REPORT INFORMATION
  Report Type: Spontaneous
  Country: JP (occurrence: JP)
  Receive Date: 20130501
  Receipt Date: 20130531
  Transmission Date: 20140414
  Serious: Yes (Other)
  Sender: FDA-Public Use
  Company Number: JP-JNJFOC-20130414288

PATIENT
  Age: 25 Year
  Sex: Female

DRUGS (1)
  1. REMICADE [Suspect]
     Indication: PRODUCT USED FOR UNKNOWN INDICATION
     Route: 042
     Dates: start: 201101, end: 201101

REACTIONS (4)
  - Salmonellosis [Recovered/Resolved]
  - Subcutaneous abscess [Recovered/Resolved]
  - Cellulitis [Recovered/Resolved]
  - Dizziness [Recovered/Resolved]
